FAERS Safety Report 13157179 (Version 1)
Quarter: 2017Q1

REPORT INFORMATION
  Report Type: Spontaneous
  Country: CA (occurrence: CA)
  Receive Date: 20170127
  Receipt Date: 20170127
  Transmission Date: 20170428
  Serious: Yes (Other)
  Sender: FDA-Public Use
  Company Number: CA-TEVA-734076ACC

PATIENT
  Age: 31 Year
  Sex: Female
  Weight: 86.71 kg

DRUGS (2)
  1. DULOXETINE. [Suspect]
     Active Substance: DULOXETINE
     Indication: FIBROMYALGIA
  2. DULOXETINE. [Suspect]
     Active Substance: DULOXETINE
     Indication: PAIN
     Dosage: 15 MILLIGRAM DAILY;
     Route: 048

REACTIONS (6)
  - Abnormal dreams [Recovered/Resolved]
  - Hallucination, visual [Recovered/Resolved]
  - Photophobia [Recovered/Resolved]
  - Hallucination, auditory [Recovered/Resolved]
  - Nightmare [Recovered/Resolved]
  - Visual field defect [Recovered/Resolved]
